FAERS Safety Report 8223692-8 (Version None)
Quarter: 2012Q1

REPORT INFORMATION
  Report Type: 
  Country: None (occurrence: None)
  Receive Date: 20120316
  Receipt Date: 20120223
  Transmission Date: 20120608
  Serious: Yes (Death, Hospitalization)
  Sender: FDA-Public Use
  Company Number: PHHY2012JP015666

PATIENT
  Age: 20 Year
  Sex: Male

DRUGS (2)
  1. TIZANIDINE HYDROCHLORIDE [Suspect]
     Dosage: ORAL
     Route: 048
  2. CLONAZEPAM [Suspect]
     Dosage: ORAL
     Route: 048

REACTIONS (9)
  - MULTI-ORGAN FAILURE [None]
  - BLOOD GLUCOSE INCREASED [None]
  - BLOOD CREATINE PHOSPHOKINASE INCREASED [None]
  - NEUROLEPTIC MALIGNANT SYNDROME [None]
  - RENAL FAILURE ACUTE [None]
  - BLOOD ALKALINE PHOSPHATASE INCREASED [None]
  - BLOOD LACTATE DEHYDROGENASE INCREASED [None]
  - ALANINE AMINOTRANSFERASE INCREASED [None]
  - ASPARTATE AMINOTRANSFERASE INCREASED [None]
